FAERS Safety Report 22621858 (Version 1)
Quarter: 2023Q2

REPORT INFORMATION
  Report Type: Spontaneous
  Country: FR (occurrence: FR)
  Receive Date: 20230620
  Receipt Date: 20230620
  Transmission Date: 20230722
  Serious: Yes (Life-Threatening, Hospitalization)
  Sender: FDA-Public Use
  Company Number: None

PATIENT
  Age: 20 Year
  Sex: Male
  Weight: 70 kg

DRUGS (7)
  1. SUFENTANIL [Suspect]
     Active Substance: SUFENTANIL
     Indication: General anaesthesia
     Dosage: 25 MICROGRAM, 1 TOTAL
     Route: 042
     Dates: start: 20210109, end: 20210109
  2. PROPOFOL [Suspect]
     Active Substance: PROPOFOL
     Indication: General anaesthesia
     Dosage: 200 MILLIGRAM, 1 TOTAL
     Route: 042
     Dates: start: 20210109, end: 20210109
  3. DEXAMETHASONE [Suspect]
     Active Substance: DEXAMETHASONE
     Indication: Prophylaxis of nausea and vomiting
     Dosage: 8 MILLIGRAM, 1 TOTAL
     Route: 042
     Dates: start: 20210109, end: 20210109
  4. ATRACURIUM [Suspect]
     Active Substance: ATRACURIUM
     Indication: General anaesthesia
     Dosage: 40 MILLIGRAM, 1 TOTAL
     Route: 042
     Dates: start: 20210109, end: 20210109
  5. DROPERIDOL [Suspect]
     Active Substance: DROPERIDOL
     Indication: Prophylaxis of nausea and vomiting
     Dosage: 1.25 MILLIGRAM, 1 TOTAL
     Route: 042
     Dates: start: 20210109, end: 20210109
  6. BRICANYL [Concomitant]
     Active Substance: TERBUTALINE SULFATE
     Dosage: 500 MICROGRAMMES/DOSE
     Route: 065
  7. IPRATROPIUM MERCK [Concomitant]
     Dosage: 0.5 MG/2 ML, SOLUTION FOR INHALATION BY NEBULIZER
     Route: 065

REACTIONS (1)
  - Anaphylactic shock [Recovered/Resolved]

NARRATIVE: CASE EVENT DATE: 20210109
